FAERS Safety Report 8355926-3 (Version None)
Quarter: 2012Q2

REPORT INFORMATION
  Report Type: 
  Country: None (occurrence: None)
  Receive Date: 20120514
  Receipt Date: 20120507
  Transmission Date: 20120825
  Serious: Yes (Hospitalization, Other)
  Sender: FDA-Public Use
  Company Number: US-ACCORD-013452

PATIENT
  Age: 4 Year
  Sex: Male

DRUGS (2)
  1. FLUMAZENIL [Concomitant]
  2. CLONAZEPAM [Suspect]

REACTIONS (6)
  - RESPIRATORY DEPRESSION [None]
  - DEPRESSED LEVEL OF CONSCIOUSNESS [None]
  - ATAXIA [None]
  - HYPOTENSION [None]
  - ATRIOVENTRICULAR BLOCK [None]
  - INTENTIONAL DRUG MISUSE [None]
